FAERS Safety Report 13371697 (Version 2)
Quarter: 2017Q2

REPORT INFORMATION
  Report Type: Spontaneous
  Country: JP (occurrence: JP)
  Receive Date: 20170325
  Receipt Date: 20170404
  Transmission Date: 20170830
  Serious: Yes (Other)
  Sender: FDA-Public Use
  Company Number: JP-AMGEN-JPNSP2017046016

PATIENT
  Age: 54 Year
  Sex: Female

DRUGS (12)
  1. IRINOTECAN HYDROCHLORIDE. [Concomitant]
     Active Substance: IRINOTECAN HYDROCHLORIDE
     Indication: METASTASES TO LIVER
  2. 5-FU [Concomitant]
     Active Substance: FLUOROURACIL
     Indication: RECTOSIGMOID CANCER
     Dosage: UNK
     Route: 042
     Dates: start: 201308
  3. 5-FU [Concomitant]
     Active Substance: FLUOROURACIL
     Indication: METASTASES TO LIVER
     Dosage: UNK
     Route: 042
     Dates: start: 201405
  4. VECTIBIX [Suspect]
     Active Substance: PANITUMUMAB
     Indication: METASTASES TO LIVER
  5. VECTIBIX [Suspect]
     Active Substance: PANITUMUMAB
     Indication: METASTASES TO LUNG
  6. IRINOTECAN HYDROCHLORIDE. [Concomitant]
     Active Substance: IRINOTECAN HYDROCHLORIDE
     Indication: RECTOSIGMOID CANCER
     Dosage: UNK
     Route: 041
     Dates: start: 201405
  7. IRINOTECAN HYDROCHLORIDE. [Concomitant]
     Active Substance: IRINOTECAN HYDROCHLORIDE
     Indication: METASTASES TO LUNG
  8. CALCIUM LEVOFOLINATE [Concomitant]
     Active Substance: LEVOLEUCOVORIN CALCIUM
     Indication: METASTASES TO LIVER
     Dosage: UNK
     Route: 041
     Dates: start: 201405
  9. CALCIUM LEVOFOLINATE [Concomitant]
     Active Substance: LEVOLEUCOVORIN CALCIUM
     Indication: METASTASES TO LUNG
  10. VECTIBIX [Suspect]
     Active Substance: PANITUMUMAB
     Indication: RECTOSIGMOID CANCER
     Dosage: UNK
     Route: 041
     Dates: start: 201405
  11. 5-FU [Concomitant]
     Active Substance: FLUOROURACIL
     Indication: METASTASES TO LUNG
  12. CALCIUM LEVOFOLINATE [Concomitant]
     Active Substance: LEVOLEUCOVORIN CALCIUM
     Indication: RECTOSIGMOID CANCER
     Dosage: UNK
     Route: 041
     Dates: start: 201308

REACTIONS (2)
  - Metastases to lung [Unknown]
  - Metastases to peritoneum [Unknown]

NARRATIVE: CASE EVENT DATE: 201508
